FAERS Safety Report 17942065 (Version 1)
Quarter: 2020Q2

REPORT INFORMATION
  Report Type: Spontaneous
  Country: US (occurrence: US)
  Receive Date: 20200624
  Receipt Date: 20200624
  Transmission Date: 20200714
  Serious: Yes (Other)
  Sender: FDA-Public Use
  Company Number: None

PATIENT
  Age: 40 Year
  Sex: Female
  Weight: 85.28 kg

DRUGS (3)
  1. NOVOLOG [Suspect]
     Active Substance: INSULIN ASPART
     Dates: start: 20200605, end: 20200606
  2. OMNIPOD DASH [Concomitant]
  3. NOVOLOG [Suspect]
     Active Substance: INSULIN ASPART

REACTIONS (9)
  - Implant site pain [None]
  - Drug delivery device implantation [None]
  - Abdominal pain [None]
  - Implant site extravasation [None]
  - Blister [None]
  - Implant site pruritus [None]
  - Scratch [None]
  - Medical device removal [None]
  - Device malfunction [None]

NARRATIVE: CASE EVENT DATE: 20200605
